FAERS Safety Report 13939772 (Version 2)
Quarter: 2017Q3

REPORT INFORMATION
  Report Type: Report from Study
  Country: US (occurrence: US)
  Receive Date: 20170906
  Receipt Date: 20170908
  Transmission Date: 20171127
  Serious: Yes (Other)
  Sender: FDA-Public Use
  Company Number: US-ROCHE-1989819

PATIENT
  Sex: Female

DRUGS (20)
  1. ASPIRIN. [Concomitant]
     Active Substance: ASPIRIN
     Route: 054
  2. SIMVASTATIN. [Concomitant]
     Active Substance: SIMVASTATIN
     Dosage: 1 TAB AT BEDTIME
     Route: 048
  3. ATENOLOL. [Concomitant]
     Active Substance: ATENOLOL
     Route: 048
  4. MONTELUKAST SODIUM. [Concomitant]
     Active Substance: MONTELUKAST SODIUM
     Dosage: 1 TAB AT BEDTIME
     Route: 048
  5. ETODOLAC. [Concomitant]
     Active Substance: ETODOLAC
     Route: 048
  6. FUROSEMIDE. [Concomitant]
     Active Substance: FUROSEMIDE
     Route: 048
  7. NOVOLOG [Concomitant]
     Active Substance: INSULIN ASPART
     Dosage: 100 UNIT/ML
     Route: 058
  8. TYLENOL ARTHRITIS PAIN [Concomitant]
     Active Substance: ACETAMINOPHEN
     Dosage: 650 MG TBCR
     Route: 065
  9. PRILOSEC [Concomitant]
     Active Substance: OMEPRAZOLE MAGNESIUM
     Dosage: 40 MG CPDR, 1 CAPSULE TWICE DAILY
     Route: 065
  10. PROAIR HFA [Concomitant]
     Active Substance: ALBUTEROL SULFATE
     Dosage: 108 (90 BASE) MCG/ACT INHALATION AEROSOL SOLUTION, INHALE 2 PUFFS EVRY 4- HOURS
     Route: 065
  11. BENZONATATE. [Concomitant]
     Active Substance: BENZONATATE
     Route: 048
  12. HYDROCHLOROTHIAZIDE. [Concomitant]
     Active Substance: HYDROCHLOROTHIAZIDE
     Route: 048
  13. LODINE [Concomitant]
     Active Substance: ETODOLAC
     Route: 065
  14. SYNTHROID [Concomitant]
     Active Substance: LEVOTHYROXINE SODIUM
     Route: 048
  15. EPINEPHRINE. [Concomitant]
     Active Substance: EPINEPHRINE
     Dosage: 0.3MG/0.3ML
     Route: 065
  16. XOLAIR [Suspect]
     Active Substance: OMALIZUMAB
     Indication: ASTHMA
     Route: 058
  17. BREO ELLIPTA [Concomitant]
     Active Substance: FLUTICASONE FUROATE\VILANTEROL TRIFENATATE
     Dosage: 100-25 MCG/INH
     Route: 065
  18. ALBUTEROL/IPRATROPIUM [Concomitant]
     Active Substance: ALBUTEROL\IPRATROPIUM
     Dosage: 0.5-2.5 (3) 3 MG/ML INHALATION SOLUTION
     Route: 065
  19. LEVEMIR [Concomitant]
     Active Substance: INSULIN DETEMIR
     Dosage: 100 UNIT/ML
     Route: 058
  20. POTASSIUM CHLORIDE. [Concomitant]
     Active Substance: POTASSIUM CHLORIDE
     Dosage: ER 20MEQ ORAL TAB EXTENDED RELEASE
     Route: 065

REACTIONS (4)
  - Cardiac failure congestive [Unknown]
  - Nervousness [Unknown]
  - Dysgeusia [Unknown]
  - Gastric disorder [Unknown]
